FAERS Safety Report 8559170-6 (Version None)
Quarter: 2012Q3

REPORT INFORMATION
  Report Type: 
  Country: None (occurrence: None)
  Receive Date: 20120720
  Receipt Date: 20120711
  Transmission Date: 20120928
  Serious: Yes (Other)
  Sender: FDA-Public Use
  Company Number: 2012P1048942

PATIENT
  Age: 45 Year
  Sex: Male
  Weight: 65 kg

DRUGS (4)
  1. FENTANYL CITRATE [Concomitant]
  2. PROPOFOL [Concomitant]
  3. LIDOCAINE [Suspect]
     Indication: ANAESTHESIA
     Dosage: 4 PUFF;
  4. VECURONIUM BROMIDE [Concomitant]

REACTIONS (4)
  - OXYGEN SATURATION DECREASED [None]
  - CHEST EXPANSION DECREASED [None]
  - BRONCHOSPASM [None]
  - RALES [None]
